FAERS Safety Report 8374353-6 (Version None)
Quarter: 2012Q2

REPORT INFORMATION
  Report Type: 
  Country: None (occurrence: None)
  Receive Date: 20120521
  Receipt Date: 20120514
  Transmission Date: 20120825
  Serious: Yes (Death, Hospitalization)
  Sender: FDA-Public Use
  Company Number: PT-BRISTOL-MYERS SQUIBB COMPANY-16565350

PATIENT
  Sex: Female

DRUGS (1)
  1. YERVOY [Suspect]
     Indication: MALIGNANT MELANOMA
     Dosage: RECEIVED 2 DOSES.

REACTIONS (3)
  - NEOPLASM MALIGNANT [None]
  - PNEUMOCOCCAL INFECTION [None]
  - TRANSAMINASES INCREASED [None]
